FAERS Safety Report 8509091-X (Version None)
Quarter: 2012Q3

REPORT INFORMATION
  Report Type: 
  Country: None (occurrence: None)
  Receive Date: 20120702
  Receipt Date: 20120619
  Transmission Date: 20120928
  Serious: Yes (Other)
  Sender: FDA-Public Use
  Company Number: DSA_58096_2012

PATIENT

DRUGS (7)
  1. IRINOTECAN HCL [Suspect]
     Indication: COLORECTAL CANCER METASTATIC
     Dosage: 180 MG/M2, EVERY OTHER WEEK, INTRAVENOUS
     Route: 042
  2. FLUOROURACIL [Suspect]
     Indication: COLORECTAL CANCER METASTATIC
     Dosage: 400 MG/M2, ONCE, INTRAVENOUS  BOLUS, (2400 MG/M2, EVERY OTHER WEEK)
     Route: 040
  3. OXALIPLATIN [Suspect]
     Indication: COLORECTAL CANCER METASTATIC
     Dosage: 85 MG/M2, EVERY OTHER WEEK, INTRAVENOUS
  4. LEUCOVORIN CALCIUM [Suspect]
     Indication: COLORECTAL CANCER METASTATIC
     Dosage: 200 MG/M2, EVERY OTHER WEEK, INTRAVENOUS
     Route: 042
  5. CETUXIMAB (CETUXIMAB) [Suspect]
     Indication: COLORECTAL CANCER METASTATIC
     Dosage: 400 MG/M2, ONCE, INTRAVENOUS, 250 MG/M2 WEEKLY
     Route: 042
  6. NEUPOGEN [Concomitant]
  7. ANTIHISTAMINES [Concomitant]

REACTIONS (1)
  - DECREASED APPETITE [None]
